FAERS Safety Report 5767668-9 (Version None)
Quarter: 2008Q2

REPORT INFORMATION
  Report Type: 
  Country: None (occurrence: None)
  Receive Date: 20080609
  Receipt Date: 20080527
  Transmission Date: 20081010
  Serious: Yes (Death, Hospitalization)
  Sender: FDA-Public Use
  Company Number: 2008AL005977

PATIENT
  Age: 71 Year
  Sex: Male

DRUGS (6)
  1. DIGOXIN TAMIDEABLETS, USP (AMIDE) [Suspect]
     Indication: CARDIAC FAILURE CONGESTIVE
     Dosage: 0.25 MG PO
     Route: 048
     Dates: start: 20060101, end: 20080428
  2. ALLOPURINOL [Concomitant]
  3. FOLIC ACID [Concomitant]
  4. CARVEDILOL [Concomitant]
  5. MAGNESIUM [Concomitant]
  6. VITAMIN B1 TAB [Concomitant]

REACTIONS (5)
  - ENERGY INCREASED [None]
  - FALL [None]
  - HEART RATE INCREASED [None]
  - INSOMNIA [None]
  - PSYCHOMOTOR HYPERACTIVITY [None]
